FAERS Safety Report 21611985 (Version 1)
Quarter: 2022Q4

REPORT INFORMATION
  Report Type: Report from Study
  Country: US (occurrence: US)
  Receive Date: 20221118
  Receipt Date: 20221118
  Transmission Date: 20230113
  Serious: Yes (Other)
  Sender: FDA-Public Use
  Company Number: US-ABBVIE-4204435

PATIENT
  Sex: Female

DRUGS (1)
  1. SKYRIZI [Suspect]
     Active Substance: RISANKIZUMAB-RZAA
     Indication: Psoriasis
     Route: 058

REACTIONS (4)
  - Small cell lung cancer [Recovered/Resolved]
  - Aphasia [Recovered/Resolved]
  - Gait disturbance [Not Recovered/Not Resolved]
  - Motor dysfunction [Unknown]

NARRATIVE: CASE EVENT DATE: 20190101
